FAERS Safety Report 7310306-4 (Version None)
Quarter: 2011Q1

REPORT INFORMATION
  Report Type: 
  Country: None (occurrence: None)
  Receive Date: 20110224
  Receipt Date: 20110128
  Transmission Date: 20110831
  Serious: No
  Sender: FDA-Public Use
  Company Number: US-B.I. PHARMACEUTICALS,INC./RIDGEFIELD-2010-BP-15189BP

PATIENT
  Sex: Female

DRUGS (10)
  1. METOPROLOL SUCCINATE EXTENDED RELEASE [Concomitant]
     Indication: ATRIAL FIBRILLATION
     Dosage: 150 MG
     Route: 048
  2. VERAPAMIL [Concomitant]
     Indication: ATRIAL FIBRILLATION
     Dosage: 120 MG
     Route: 048
  3. SYNTHROID [Concomitant]
     Indication: HYPOTHYROIDISM
     Dosage: 100 MG
     Route: 048
  4. PRADAXA [Suspect]
     Indication: DRUG THERAPY CHANGED
  5. LIPITOR [Concomitant]
     Indication: BLOOD CHOLESTEROL INCREASED
     Dosage: 10 MG
     Route: 048
  6. FLUDROCORTISONE [Concomitant]
     Indication: PROPHYLAXIS
     Route: 048
  7. TRIAMTERENE AND HYDROCHLOROTHIAZIDE [Concomitant]
     Route: 048
  8. PRADAXA [Suspect]
     Indication: ATRIAL FIBRILLATION
     Dosage: 300 MG
     Route: 048
     Dates: start: 20101119, end: 20101219
  9. WARFARIN [Concomitant]
     Indication: ATRIAL FIBRILLATION
     Route: 048
  10. CORTEF [Concomitant]
     Indication: ADDISON'S DISEASE
     Dosage: 15 MG
     Route: 048

REACTIONS (3)
  - DYSPEPSIA [None]
  - DIARRHOEA [None]
  - IRRITABLE BOWEL SYNDROME [None]
